FAERS Safety Report 11834143 (Version 2)
Quarter: 2015Q4

REPORT INFORMATION
  Report Type: Report from Study
  Country: US (occurrence: US)
  Receive Date: 20151214
  Receipt Date: 20151224
  Transmission Date: 20160305
  Serious: No
  Sender: FDA-Public Use
  Company Number: PHEH2015US025928

PATIENT
  Age: 38 Year
  Sex: Male

DRUGS (1)
  1. COSENTYX [Suspect]
     Active Substance: SECUKINUMAB
     Indication: PSORIASIS
     Dosage: 300 MG, QW
     Route: 058
     Dates: start: 20151209

REACTIONS (2)
  - Incorrect dose administered [Unknown]
  - Wrong technique in product usage process [Unknown]

NARRATIVE: CASE EVENT DATE: 20151209
